FAERS Safety Report 4843199-5 (Version None)
Quarter: 2005Q4

REPORT INFORMATION
  Report Type: 
  Country: None (occurrence: None)
  Receive Date: 20051027
  Receipt Date: 20050224
  Transmission Date: 20060501
  Serious: Yes (Other)
  Sender: FDA-Public Use
  Company Number: HQWYE772202MAR05

PATIENT
  Age: 67 Year
  Sex: Female

DRUGS (1)
  1. PREMARIN (CONJUGATED ESTROGENS, TABLET, 0.625 MG) [Suspect]
     Dates: start: 19760101, end: 20040201

REACTIONS (1)
  - OVARIAN CANCER [None]
